FAERS Safety Report 8421509-X (Version None)
Quarter: 2012Q2

REPORT INFORMATION
  Report Type: 
  Country: None (occurrence: None)
  Receive Date: 20120608
  Receipt Date: 20120529
  Transmission Date: 20120825
  Serious: Yes (Other)
  Sender: FDA-Public Use
  Company Number: IT-JNJFOC-20120503585

PATIENT
  Age: 54 Year
  Sex: Female

DRUGS (5)
  1. ALENDRONATE SODIUM [Concomitant]
     Route: 065
  2. ASPIRIN [Concomitant]
     Route: 065
  3. REMICADE [Suspect]
     Indication: PSORIATIC ARTHROPATHY
     Route: 042
     Dates: start: 20091002, end: 20120412
  4. PANTOPRAZOLE SODIUM [Concomitant]
     Route: 065
  5. SIMVASTATIN [Concomitant]
     Route: 065

REACTIONS (4)
  - INFUSION RELATED REACTION [None]
  - HEADACHE [None]
  - DYSPNOEA [None]
  - LARYNGOSPASM [None]
